FAERS Safety Report 6197009-7 (Version None)
Quarter: 2009Q2

REPORT INFORMATION
  Report Type: 
  Country: None (occurrence: None)
  Receive Date: 20090520
  Receipt Date: 20090508
  Transmission Date: 20091009
  Serious: Yes (Other)
  Sender: FDA-Public Use
  Company Number: US-PFIZER INC-2009194614

PATIENT
  Age: 40 Year
  Sex: Female

DRUGS (1)
  1. GEODON [Suspect]
     Dosage: 80 MG, 2X/DAY
     Dates: end: 20090301

REACTIONS (4)
  - CHANGE OF BOWEL HABIT [None]
  - DYSPEPSIA [None]
  - GASTROINTESTINAL DISORDER [None]
  - VOMITING [None]
